FAERS Safety Report 7296081-0 (Version None)
Quarter: 2011Q1

REPORT INFORMATION
  Report Type: 
  Country: None (occurrence: None)
  Receive Date: 20110216
  Receipt Date: 20110207
  Transmission Date: 20110831
  Serious: Yes (Death, Other)
  Sender: FDA-Public Use
  Company Number: JP-ELI_LILLY_AND_COMPANY-JP201102002177

PATIENT
  Age: 80 Year
  Sex: Female

DRUGS (5)
  1. NAUZELIN [Concomitant]
     Route: 065
     Dates: start: 20040901
  2. LOXONIN [Concomitant]
     Route: 065
     Dates: start: 20040901
  3. THIATON [Concomitant]
     Route: 065
     Dates: start: 20040901
  4. GEMZAR [Suspect]
     Indication: PANCREATIC CARCINOMA
     Dosage: UNK, OTHER
     Route: 042
     Dates: start: 20040901, end: 20051001
  5. FOIPAN [Concomitant]
     Route: 065
     Dates: start: 20040901

REACTIONS (2)
  - HEPATIC STEATOSIS [None]
  - HEPATIC ENCEPHALOPATHY [None]
